FAERS Safety Report 19819917 (Version 1)
Quarter: 2021Q3

REPORT INFORMATION
  Report Type: Spontaneous
  Country: US (occurrence: US)
  Receive Date: 20210913
  Receipt Date: 20210913
  Transmission Date: 20211014
  Serious: No
  Sender: FDA-Public Use
  Company Number: US-TEVA-2021-US-1946541

PATIENT
  Sex: Female

DRUGS (3)
  1. ACYCLOVIR TEVA [Suspect]
     Active Substance: ACYCLOVIR
     Indication: HERPES SIMPLEX
     Route: 065
  2. ZOVIRUS [Concomitant]
     Indication: HERPES SIMPLEX
     Dosage: 800 MILLIGRAM DAILY;
     Route: 065
  3. ACYCLOVIR CAMBER [Suspect]
     Active Substance: ACYCLOVIR
     Indication: HERPES SIMPLEX
     Route: 065

REACTIONS (1)
  - Therapeutic product effect decreased [Unknown]
